FAERS Safety Report 4634476-1 (Version None)
Quarter: 2005Q2

REPORT INFORMATION
  Report Type: 
  Country: None (occurrence: None)
  Receive Date: 20050413
  Receipt Date: 20050407
  Transmission Date: 20051028
  Serious: Yes (Hospitalization)
  Sender: FDA-Public Use
  Company Number: ES-MERCK-0504ESP00020

PATIENT
  Age: 27 Year
  Sex: Male
  Weight: 77 kg

DRUGS (2)
  1. ZETIA [Suspect]
     Indication: HYPERCHOLESTEROLAEMIA
     Route: 048
     Dates: start: 20041001, end: 20041008
  2. ATORVASTATIN CALCIUM [Suspect]
     Route: 048
     Dates: start: 20041001, end: 20041008

REACTIONS (4)
  - DRUG INTERACTION [None]
  - DYSPEPSIA [None]
  - HEADACHE [None]
  - PARAESTHESIA [None]
